FAERS Safety Report 4552238-0 (Version None)
Quarter: 2004Q4

REPORT INFORMATION
  Report Type: 
  Country: None (occurrence: None)
  Receive Date: 20041217
  Receipt Date: 20041008
  Transmission Date: 20050328
  Serious: No
  Sender: FDA-Public Use
  Company Number: 2004-BP-09767BP

PATIENT
  Age: 64 Year
  Sex: Female

DRUGS (6)
  1. SPIRIVA [Suspect]
     Indication: CHRONIC OBSTRUCTIVE AIRWAYS DISEASE
     Dosage: 18 MCG (18 MCG, 18 MCG ONCE DAILY), IH
     Route: 055
     Dates: start: 20040801
  2. SPIRIVA [Suspect]
  3. SPIRIVA [Suspect]
  4. ALBUTEROL [Concomitant]
  5. SINGULAIR (MONTELUKAST) [Concomitant]
  6. ADVAIR (SERETIDE IDE [Concomitant]

REACTIONS (2)
  - COUGH [None]
  - LARYNGITIS [None]
